FAERS Safety Report 21594034 (Version 2)
Quarter: 2022Q4

REPORT INFORMATION
  Report Type: Spontaneous
  Country: SA (occurrence: SA)
  Receive Date: 20221115
  Receipt Date: 20221228
  Transmission Date: 20230113
  Serious: Yes (Hospitalization, Other)
  Sender: FDA-Public Use
  Company Number: SA-IPCA LABORATORIES LIMITED-IPC-2022-SA-001917

PATIENT

DRUGS (1)
  1. WARFARIN [Suspect]
     Active Substance: WARFARIN
     Indication: Atrial fibrillation
     Dosage: UNK
     Route: 065

REACTIONS (4)
  - Calciphylaxis [Recovered/Resolved]
  - Depressed level of consciousness [Unknown]
  - Fatigue [Unknown]
  - Chills [Unknown]
